FAERS Safety Report 8561894-1 (Version None)
Quarter: 2012Q3

REPORT INFORMATION
  Report Type: 
  Country: None (occurrence: None)
  Receive Date: 20120802
  Receipt Date: 20120723
  Transmission Date: 20120928
  Serious: No
  Sender: FDA-Public Use
  Company Number: US-AMGEN-USASP2011058055

PATIENT
  Age: 39 Year
  Sex: Male
  Weight: 90.703 kg

DRUGS (1)
  1. ENBREL [Suspect]
     Indication: PSORIASIS
     Dosage: 50 MG, 2 TIMES/WK
     Route: 058
     Dates: start: 20110501, end: 20120401

REACTIONS (9)
  - COUGH [None]
  - FATIGUE [None]
  - NASOPHARYNGITIS [None]
  - WHITE BLOOD CELL COUNT INCREASED [None]
  - RESPIRATORY TRACT CONGESTION [None]
  - INFLUENZA [None]
  - OROPHARYNGEAL PAIN [None]
  - PSORIASIS [None]
  - INCREASED UPPER AIRWAY SECRETION [None]
